FAERS Safety Report 7571580-2 (Version None)
Quarter: 2011Q2

REPORT INFORMATION
  Report Type: 
  Country: None (occurrence: None)
  Receive Date: 20110624
  Receipt Date: 20110620
  Transmission Date: 20111010
  Serious: Yes (Hospitalization)
  Sender: FDA-Public Use
  Company Number: FR-BRISTOL-MYERS SQUIBB COMPANY-15848450

PATIENT
  Age: 47 Year
  Sex: Female

DRUGS (3)
  1. TAXOL [Suspect]
     Indication: LUNG ADENOCARCINOMA
     Route: 042
     Dates: start: 20100901, end: 20101201
  2. ALIMTA [Suspect]
     Indication: LUNG ADENOCARCINOMA
     Dosage: 3 COURSES:10-DEC-2010, 30-DEC-2010, AND 27-JAN-2011
     Route: 042
     Dates: start: 20101210, end: 20110127
  3. CARBOPLATIN [Suspect]
     Indication: LUNG ADENOCARCINOMA
     Route: 042
     Dates: start: 20100901, end: 20101201

REACTIONS (3)
  - CARDIAC FAILURE [None]
  - PERICARDIAL EFFUSION [None]
  - PULMONARY ARTERIAL HYPERTENSION [None]
